FAERS Safety Report 15266806 (Version 1)
Quarter: 2018Q3

REPORT INFORMATION
  Report Type: Report from Study
  Country: HU (occurrence: HU)
  Receive Date: 20180810
  Receipt Date: 20180810
  Transmission Date: 20181010
  Serious: Yes (Hospitalization)
  Sender: FDA-Public Use
  Company Number: HU-TEVA-2018-HU-936620

PATIENT
  Age: 52 Year
  Sex: Female

DRUGS (41)
  1. TACROLIMUS. [Suspect]
     Active Substance: TACROLIMUS
     Dosage: 5 MILLIGRAM DAILY;
     Route: 048
     Dates: start: 20171014, end: 20171204
  2. TACROLIMUS. [Suspect]
     Active Substance: TACROLIMUS
     Dosage: 4 MILLIGRAM DAILY;
     Route: 048
     Dates: start: 20171206
  3. BLINDED ASP1517 [Suspect]
     Active Substance: ROXADUSTAT
     Dosage: UNK UNK, UNKNOWN FREQ.
     Route: 065
     Dates: start: 20160502, end: 20160529
  4. BLINDED ASP1517 [Suspect]
     Active Substance: ROXADUSTAT
     Dosage: UNK UNK, UNKNOWN FREQ.
     Route: 065
     Dates: start: 20150907, end: 20150920
  5. BLINDED ASP1517 [Suspect]
     Active Substance: ROXADUSTAT
     Dosage: UNK UNK, UNKNOWN FREQ.
     Route: 065
     Dates: start: 20160530, end: 20160626
  6. BLINDED ASP1517 [Suspect]
     Active Substance: ROXADUSTAT
     Dosage: UNK UNK, UNKNOWN FREQ.
     Route: 065
     Dates: start: 20150921, end: 20151004
  7. PARICALCITOL. [Concomitant]
     Active Substance: PARICALCITOL
     Indication: CHRONIC KIDNEY DISEASE-MINERAL AND BONE DISORDER
     Dates: start: 20170626
  8. BLINDED ASP1517 [Suspect]
     Active Substance: ROXADUSTAT
     Dosage: UNK UNK, UNKNOWN FREQ.
     Route: 065
     Dates: start: 20151130, end: 20151213
  9. BLINDED ASP1517 [Suspect]
     Active Substance: ROXADUSTAT
     Dosage: UNK UNK, UNKNOWN FREQ.
     Route: 065
     Dates: start: 20160208, end: 20160306
  10. BLINDED ASP1517 [Suspect]
     Active Substance: ROXADUSTAT
     Dosage: UNK UNK, UNKNOWN FREQ.
     Route: 065
     Dates: start: 20160111, end: 20160207
  11. BLINDED ASP1517 [Suspect]
     Active Substance: ROXADUSTAT
     Dosage: UNK UNK, UNKNOWN FREQ.
     Route: 065
     Dates: start: 20170501, end: 20170528
  12. VITAMIN D3 [Concomitant]
     Active Substance: CHOLECALCIFEROL
     Indication: CHRONIC KIDNEY DISEASE-MINERAL AND BONE DISORDER
     Dosage: 2000 IU (INTERNATIONAL UNIT) DAILY;
     Route: 048
     Dates: start: 20160324
  13. BLINDED ASP1517 [Suspect]
     Active Substance: ROXADUSTAT
     Indication: NEPHROGENIC ANAEMIA
     Dosage: UNK UNK, UNKNOWN FREQ.
     Route: 065
     Dates: start: 20150824, end: 20150906
  14. TACROLIMUS. [Suspect]
     Active Substance: TACROLIMUS
     Indication: IMMUNOSUPPRESSION
     Dosage: 15 MILLIGRAM DAILY;
     Route: 048
     Dates: start: 20170829, end: 20171013
  15. TACROLIMUS. [Suspect]
     Active Substance: TACROLIMUS
     Dosage: 3 MILLIGRAM DAILY;
     Route: 048
     Dates: start: 20171014, end: 20171204
  16. BLINDED ASP1517 [Suspect]
     Active Substance: ROXADUSTAT
     Dosage: UNK UNK, UNKNOWN FREQ.
     Route: 065
     Dates: start: 20151102, end: 20151115
  17. BLINDED ASP1517 [Suspect]
     Active Substance: ROXADUSTAT
     Dosage: UNK UNK, UNKNOWN FREQ.
     Route: 065
     Dates: start: 20161114, end: 20161211
  18. BLINDED ASP1517 [Suspect]
     Active Substance: ROXADUSTAT
     Dosage: UNK UNK, UNKNOWN FREQ.
     Route: 065
     Dates: start: 20160404, end: 20160501
  19. BISOPROLOL [Concomitant]
     Active Substance: BISOPROLOL
     Indication: TACHYCARDIA
     Route: 048
     Dates: start: 20160927
  20. BISOPROLOL [Concomitant]
     Active Substance: BISOPROLOL
     Indication: HYPERTENSION
  21. BLINDED ASP1517 [Suspect]
     Active Substance: ROXADUSTAT
     Dosage: UNK UNK, UNKNOWN FREQ.
     Route: 065
     Dates: start: 20160919, end: 20161016
  22. BLINDED ASP1517 [Suspect]
     Active Substance: ROXADUSTAT
     Dosage: UNK UNK, UNKNOWN FREQ.
     Route: 065
     Dates: start: 20170529, end: 20170625
  23. BLINDED ASP1517 [Suspect]
     Active Substance: ROXADUSTAT
     Dosage: UNK UNK, UNKNOWN FREQ.
     Route: 065
     Dates: start: 20151019, end: 20151101
  24. BLINDED ASP1517 [Suspect]
     Active Substance: ROXADUSTAT
     Dosage: UNK UNK, UNKNOWN FREQ.
     Route: 065
     Dates: start: 20170821, end: 20170829
  25. BLINDED ASP1517 [Suspect]
     Active Substance: ROXADUSTAT
     Dosage: UNK UNK, UNKNOWN FREQ.
     Route: 065
     Dates: start: 20170306, end: 20170402
  26. BLINDED ASP1517 [Suspect]
     Active Substance: ROXADUSTAT
     Dosage: UNK UNK, UNKNOWN FREQ.
     Route: 065
     Dates: start: 20161212, end: 20170108
  27. BLINDED ASP1517 [Suspect]
     Active Substance: ROXADUSTAT
     Dosage: UNK UNK, UNKNOWN FREQ.
     Route: 065
     Dates: start: 20160307, end: 20160403
  28. BLINDED ASP1517 [Suspect]
     Active Substance: ROXADUSTAT
     Dosage: UNK UNK, UNKNOWN FREQ.
     Route: 065
     Dates: start: 20170206, end: 20170305
  29. BLINDED ASP1517 [Suspect]
     Active Substance: ROXADUSTAT
     Dosage: UNK UNK, UNKNOWN FREQ.
     Route: 065
     Dates: start: 20151228, end: 20160110
  30. BLINDED ASP1517 [Suspect]
     Active Substance: ROXADUSTAT
     Dosage: UNK UNK, UNKNOWN FREQ.
     Route: 065
     Dates: start: 20170626, end: 20170723
  31. BLINDED ASP1517 [Suspect]
     Active Substance: ROXADUSTAT
     Dosage: UNK UNK, UNKNOWN FREQ.
     Route: 065
     Dates: start: 20160725, end: 20160821
  32. BLINDED ASP1517 [Suspect]
     Active Substance: ROXADUSTAT
     Dosage: UNK UNK, UNKNOWN FREQ.
     Route: 065
     Dates: start: 20151116, end: 20151129
  33. BLINDED ASP1517 [Suspect]
     Active Substance: ROXADUSTAT
     Dosage: UNK UNK, UNKNOWN FREQ.
     Route: 065
     Dates: start: 20161017, end: 20161113
  34. BLINDED ASP1517 [Suspect]
     Active Substance: ROXADUSTAT
     Dosage: UNK UNK, UNKNOWN FREQ.
     Route: 065
     Dates: start: 20151214, end: 20151227
  35. FRONTIN [Concomitant]
     Active Substance: ALPRAZOLAM
     Indication: SLEEP DISORDER
     Route: 048
     Dates: start: 20161125
  36. BLINDED ASP1517 [Suspect]
     Active Substance: ROXADUSTAT
     Dosage: UNK UNK, UNKNOWN FREQ.
     Route: 065
     Dates: start: 20160822, end: 20160918
  37. BLINDED ASP1517 [Suspect]
     Active Substance: ROXADUSTAT
     Dosage: UNK UNK, UNKNOWN FREQ.
     Route: 065
     Dates: start: 20160627, end: 20160724
  38. BLINDED ASP1517 [Suspect]
     Active Substance: ROXADUSTAT
     Dosage: UNK UNK, UNKNOWN FREQ.
     Route: 065
     Dates: start: 20170403, end: 20170430
  39. BLINDED ASP1517 [Suspect]
     Active Substance: ROXADUSTAT
     Dosage: UNK UNK, UNKNOWN FREQ.
     Route: 065
     Dates: start: 20151005, end: 20151018
  40. RENVELA [Concomitant]
     Active Substance: SEVELAMER CARBONATE
     Indication: HYPERPHOSPHATAEMIA
     Route: 048
     Dates: start: 20160210
  41. LYRICA [Concomitant]
     Active Substance: PREGABALIN
     Indication: NEUROPATHY PERIPHERAL
     Route: 048
     Dates: start: 20160212

REACTIONS (1)
  - Asthenia [Recovered/Resolved]

NARRATIVE: CASE EVENT DATE: 20171013
